FAERS Safety Report 7900038-3 (Version None)
Quarter: 2011Q4

REPORT INFORMATION
  Report Type: 
  Country: None (occurrence: None)
  Receive Date: 20111108
  Receipt Date: 20111028
  Transmission Date: 20120403
  Serious: Yes (Hospitalization)
  Sender: FDA-Public Use
  Company Number: DE-BIOGENIDEC-2011BI032092

PATIENT
  Age: 40 Year
  Sex: Male

DRUGS (4)
  1. LYRICA [Concomitant]
  2. TYSABRI [Suspect]
     Indication: RELAPSING-REMITTING MULTIPLE SCLEROSIS
     Route: 042
     Dates: start: 20100624
  3. ZOLPIDEM [Concomitant]
  4. MIRTAZAPINE [Concomitant]

REACTIONS (3)
  - GAIT DISTURBANCE [None]
  - PYREXIA [None]
  - RESPIRATORY TRACT INFECTION VIRAL [None]
